FAERS Safety Report 4338984-2 (Version None)
Quarter: 2004Q2

REPORT INFORMATION
  Report Type: 
  Country: None (occurrence: None)
  Receive Date: 20040409
  Receipt Date: 20040330
  Transmission Date: 20050107
  Serious: No
  Sender: FDA-Public Use
  Company Number: 04P-163-0255648-00

PATIENT
  Age: 18 Month
  Sex: Female
  Weight: 29 kg

DRUGS (1)
  1. OMNICEF [Suspect]
     Indication: EAR INFECTION
     Dosage: 1.25 TEASPOON, 1 IN 1 D, PER ORAL
     Route: 048
     Dates: start: 20040302, end: 20040309

REACTIONS (3)
  - CONVULSION [None]
  - EYELID FUNCTION DISORDER [None]
  - SCREAMING [None]
